FAERS Safety Report 9433264 (Version 1)
Quarter: 2013Q3

REPORT INFORMATION
  Report Type: Report from Study
  Country: US (occurrence: US)
  Receive Date: 20130731
  Receipt Date: 20130731
  Transmission Date: 20140515
  Serious: Yes (Hospitalization)
  Sender: FDA-Public Use
  Company Number: US-ROCHE-1254546

PATIENT
  Age: 64 Year
  Sex: Female

DRUGS (8)
  1. AVASTIN [Suspect]
     Indication: PRODUCT USED FOR UNKNOWN INDICATION
     Route: 042
     Dates: start: 20130715
  2. ATIVAN [Suspect]
     Indication: PRODUCT USED FOR UNKNOWN INDICATION
     Route: 042
  3. IRINOTECAN [Concomitant]
     Route: 042
  4. LEUCOVORIN [Concomitant]
     Route: 042
  5. FLUOROURACIL [Concomitant]
     Route: 042
  6. DECADRON [Concomitant]
     Route: 042
  7. ZOFRAN [Concomitant]
     Route: 042
  8. TYLENOL [Concomitant]
     Route: 048

REACTIONS (2)
  - Pain [Not Recovered/Not Resolved]
  - Surgery [Unknown]
